FAERS Safety Report 25742070 (Version 1)
Quarter: 2025Q3

REPORT INFORMATION
  Report Type: Spontaneous
  Country: EU (occurrence: EU)
  Receive Date: 20250829
  Receipt Date: 20250829
  Transmission Date: 20251021
  Serious: Yes (Other)
  Sender: PFIZER
  Company Number: EU-PFIZER INC-202500170445

PATIENT
  Age: 30 Year
  Sex: Male

DRUGS (1)
  1. MARSTACIMAB [Suspect]
     Active Substance: MARSTACIMAB
     Indication: Haemophilia
     Dosage: 150 MG, WEEKLY
     Dates: start: 202508

REACTIONS (1)
  - Erectile dysfunction [Not Recovered/Not Resolved]

NARRATIVE: CASE EVENT DATE: 20250801
